FAERS Safety Report 11250416 (Version 1)
Quarter: 2015Q3

REPORT INFORMATION
  Report Type: Spontaneous
  Country: US (occurrence: US)
  Receive Date: 20150708
  Receipt Date: 20150708
  Transmission Date: 20151125
  Serious: No
  Sender: FDA-Public Use
  Company Number: US-ELI_LILLY_AND_COMPANY-US201010000222

PATIENT
  Age: 59 Year
  Sex: Male

DRUGS (4)
  1. XANAX [Concomitant]
     Active Substance: ALPRAZOLAM
     Dosage: UNK, UNKNOWN
     Route: 065
  2. BUSPAR [Concomitant]
     Active Substance: BUSPIRONE HYDROCHLORIDE
     Dosage: UNK, UNKNOWN
     Route: 065
  3. DOXEPIN [Concomitant]
     Active Substance: DOXEPIN
     Dosage: UNK, UNKNOWN
     Route: 065
  4. SYMBYAX [Suspect]
     Active Substance: FLUOXETINE HYDROCHLORIDE\OLANZAPINE
     Indication: ANXIETY
     Dosage: 0.12 (3/25)MG, DAILY (1/D)
     Route: 048
     Dates: start: 20100928

REACTIONS (2)
  - Anxiety [Unknown]
  - Stupor [Unknown]

NARRATIVE: CASE EVENT DATE: 20100929
